FAERS Safety Report 24120918 (Version 3)
Quarter: 2024Q3

REPORT INFORMATION
  Report Type: Report from Study
  Country: CA (occurrence: None)
  Receive Date: 20240722
  Receipt Date: 20240726
  Transmission Date: 20241017
  Serious: Yes (Other)
  Sender: ASTRAZENECA
  Company Number: 2024A164961

PATIENT
  Sex: Male

DRUGS (1)
  1. BUDESONIDE\FORMOTEROL [Suspect]
     Active Substance: BUDESONIDE\FORMOTEROL
     Dosage: 200 UG, TWO TIMES A DAY
     Route: 055
     Dates: start: 20240509

REACTIONS (9)
  - Obstructive airways disorder [Unknown]
  - Overdose [Unknown]
  - Product dose omission issue [Unknown]
  - Incorrect dose administered by device [Unknown]
  - Drug effect less than expected [Unknown]
  - Intentional product misuse [Unknown]
  - Device malfunction [Unknown]
  - Device delivery system issue [Unknown]
  - Drug ineffective [Unknown]
